FAERS Safety Report 4519009-2 (Version None)
Quarter: 2004Q4

REPORT INFORMATION
  Report Type: 
  Country: None (occurrence: None)
  Receive Date: 20041203
  Receipt Date: 20041203
  Transmission Date: 20050328
  Serious: Yes (Life-Threatening, Hospitalization)
  Sender: FDA-Public Use
  Company Number: None

PATIENT
  Age: 56 Year
  Sex: Male
  Weight: 92.8 kg

DRUGS (6)
  1. COUMADIN [Suspect]
     Indication: DEEP VEIN THROMBOSIS
     Dosage: 4 MG DAILY ORAL
     Route: 048
     Dates: start: 20020210, end: 20041113
  2. IRESSA [Suspect]
     Indication: NON-SMALL CELL LUNG CANCER METASTATIC
     Dosage: 250 MG DAILY ORAL
     Route: 048
     Dates: start: 20040918, end: 20041201
  3. NSCLC [Concomitant]
  4. IRESSA [Concomitant]
  5. COUMADIN [Concomitant]
  6. DVT [Concomitant]

REACTIONS (1)
  - COAGULOPATHY [None]
